FAERS Safety Report 5300073-8 (Version None)
Quarter: 2007Q2

REPORT INFORMATION
  Report Type: 
  Country: None (occurrence: None)
  Receive Date: 20070410
  Receipt Date: 20070402
  Transmission Date: 20071010
  Serious: Yes (Other)
  Sender: FDA-Public Use
  Company Number: 100#03#2007-01037

PATIENT
  Age: 51 Year
  Sex: Female

DRUGS (12)
  1. TRAMADOL HCL [Suspect]
     Indication: BACK PAIN
     Dosage: 50 MG ORAL
     Route: 048
     Dates: start: 20070314, end: 20070316
  2. ACCOLATE (ZAFIRLUKAST) (ZAFIRLUKAST) [Concomitant]
  3. CEFALEXIN (CEFALEXIN) (CEFALEXIN) [Concomitant]
  4. CETIRIZINE (CETIRIZINE) (CETIRIZINE) [Concomitant]
  5. CODEINE PHOSPHATE (CODEINE PHOSPHATE) (CODEINE) [Concomitant]
  6. DIAZEPAM [Concomitant]
  7. ELLESTE DUET (KLIOGEST ^NOVO INDUSTRI^) (ESTRADIOL HEMIHYDRATE, NORETH [Concomitant]
  8. NYSTATIN (NYSTATIN) (NYSTATIN) [Concomitant]
  9. PREDNISOLONE [Concomitant]
  10. SALBUTAMOL (SALBUTAMOL) (SALBUTAMOL) [Concomitant]
  11. SERETIDE (SERETIDE MITE) (FLUTICASONE PROPIONATE MICRONISED, SALMETERO [Concomitant]
  12. ZAPAIN (PANADEINE CO) (CODEINE PHOSPHATE, PARACETAMOL) [Concomitant]

REACTIONS (2)
  - ASTHMA [None]
  - CONDITION AGGRAVATED [None]
